FAERS Safety Report 8177172-9 (Version None)
Quarter: 2012Q1

REPORT INFORMATION
  Report Type: 
  Country: None (occurrence: None)
  Receive Date: 20120301
  Receipt Date: 20120220
  Transmission Date: 20120608
  Serious: Yes (Hospitalization)
  Sender: FDA-Public Use
  Company Number: US-BAYER-2011-047210

PATIENT
  Age: 20 Year
  Sex: Female
  Weight: 136.5 kg

DRUGS (9)
  1. DROSPIRENONE AND ETHINYL ESTRADIOL [Suspect]
     Indication: POLYCYSTIC OVARIES
     Dosage: UNK
     Dates: start: 20080101, end: 20090101
  2. ZYRTEC [Concomitant]
     Route: 048
  3. EFFEXOR XR [Concomitant]
     Dosage: 75 MG, UNK
     Route: 048
     Dates: start: 20090320
  4. YAZ [Suspect]
     Indication: POLYCYSTIC OVARIES
     Dosage: UNK
     Route: 048
     Dates: start: 20080101
  5. NEXIUM [Concomitant]
     Route: 048
  6. YASMIN [Suspect]
     Indication: POLYCYSTIC OVARIES
     Dosage: UNK
     Route: 048
     Dates: start: 20050101, end: 20070101
  7. METFORMIN HCL [Concomitant]
     Route: 048
  8. SPIRONOLACTONE [Concomitant]
     Dosage: UNK
     Route: 048
     Dates: start: 20040101
  9. CYMBALTA [Concomitant]
     Route: 048

REACTIONS (7)
  - CHOLECYSTITIS [None]
  - ABDOMINAL PAIN UPPER [None]
  - EMOTIONAL DISTRESS [None]
  - FEAR [None]
  - ANXIETY [None]
  - ANHEDONIA [None]
  - PSYCHOLOGICAL TRAUMA [None]
